FAERS Safety Report 5288632-2 (Version None)
Quarter: 2007Q1

REPORT INFORMATION
  Report Type: 
  Country: None (occurrence: None)
  Receive Date: 20070330
  Receipt Date: 20070315
  Transmission Date: 20070707
  Serious: Yes (Other)
  Sender: FDA-Public Use
  Company Number: 15962

PATIENT
  Age: 51 Year
  Sex: Female

DRUGS (13)
  1. EPIRUBICIN [Suspect]
     Indication: BREAST CANCER IN SITU
  2. FLUOROURACIL [Suspect]
     Indication: BREAST CANCER IN SITU
  3. TAMOXIFEN [Suspect]
     Indication: BREAST CANCER IN SITU
  4. CYCLOPHOSPHAMIDE [Suspect]
     Indication: BREAST CANCER IN SITU
  5. FLUDARABINE [Suspect]
  6. CYTOSINE ARABINOSIDE. MFR:  NOT SPECIFIED [Suspect]
     Indication: LEUKAEMIA
  7. IDARUBICIN HCL [Suspect]
  8. DAUNORUBICIN HCL [Concomitant]
  9. CYTOSINE ARABINOSIDE. MFR:  NOT SPECIFIED [Concomitant]
  10. AMSACRINE [Concomitant]
  11. CYCLOSOPRINE [Concomitant]
  12. METHOTREXATE [Concomitant]
  13. ANTITHYMOCYTE GLOBULIN [Concomitant]

REACTIONS (8)
  - ACUTE MYELOID LEUKAEMIA [None]
  - APLASIA [None]
  - BACTERIAL INFECTION [None]
  - BONE MARROW FAILURE [None]
  - DEVICE RELATED INFECTION [None]
  - IATROGENIC INJURY [None]
  - TREATMENT RELATED SECONDARY MALIGNANCY [None]
  - WHITE BLOOD CELL MORPHOLOGY ABNORMAL [None]
